FAERS Safety Report 12098965 (Version 1)
Quarter: 2016Q1

REPORT INFORMATION
  Report Type: Other
  Country: KR (occurrence: KR)
  Receive Date: 20160222
  Receipt Date: 20160222
  Transmission Date: 20160526
  Serious: Yes (Other)
  Sender: FDA-Public Use
  Company Number: KR-EMD SERONO-8067923

PATIENT
  Age: 16 Year
  Sex: Male
  Weight: 64 kg

DRUGS (1)
  1. RECOMBINANT HUMAN GROWTH HORMONE (RHGH) [Suspect]
     Active Substance: SOMATROPIN
     Indication: BODY HEIGHT
     Dosage: 0.125 UNITS/KG PER DAY
     Route: 058

REACTIONS (1)
  - Juvenile idiopathic arthritis [Unknown]
